FAERS Safety Report 15855983 (Version 1)
Quarter: 2019Q1

REPORT INFORMATION
  Report Type: Spontaneous
  Country: GH (occurrence: GH)
  Receive Date: 20190122
  Receipt Date: 20190122
  Transmission Date: 20190417
  Serious: Yes (Other)
  Sender: FDA-Public Use
  Company Number: GH-EDENBRIDGE PHARMACEUTICALS, LLC-GH-2019EDE000003

PATIENT

DRUGS (1)
  1. IVERMECTIN. [Suspect]
     Active Substance: IVERMECTIN
     Indication: ONCHOCERCIASIS
     Dosage: UNK

REACTIONS (1)
  - Cerebrovascular accident [Not Recovered/Not Resolved]
